FAERS Safety Report 8922716 (Version 1)
Quarter: 2012Q4

REPORT INFORMATION
  Report Type: 
  Country: SE (occurrence: SE)
  Receive Date: 20121123
  Receipt Date: 20121123
  Transmission Date: 20130627
  Serious: Yes (Hospitalization, Other)
  Sender: FDA-Public Use
  Company Number: SE-PFIZER INC-2012290054

PATIENT
  Age: 62 Year
  Sex: Female
  Weight: 83 kg

DRUGS (15)
  1. GENOTROPIN [Suspect]
     Dosage: 0.3 mg, 1x/day,7 injections/week
     Route: 058
     Dates: start: 20020219
  2. DESMOPRESSIN [Concomitant]
     Indication: ADH DECREASED
     Dosage: UNK
     Dates: start: 19920201
  3. DESMOPRESSIN [Concomitant]
     Indication: ADH DECREASED
     Dosage: UNK
     Dates: start: 19950201
  4. PREMPAK /OLD FORM/ [Concomitant]
     Indication: OVARIAN DISORDER
     Dosage: UNK
     Dates: start: 19950801
  5. PREMPAK /OLD FORM/ [Concomitant]
     Indication: HYPOGONADISM
  6. PREMPAK /OLD FORM/ [Concomitant]
     Indication: LUTEINIZING HORMONE DEFICIENCY
  7. PREMPAK /OLD FORM/ [Concomitant]
     Indication: FOLLICLE-STIMULATING HORMONE DEFICIENCY
  8. SOTACOR [Concomitant]
     Indication: TACHYCARDIA
     Dosage: UNK
     Dates: start: 19960401
  9. CORTISONE ACETATE [Concomitant]
     Indication: ACTH DECREASED
     Dosage: UNK
     Dates: start: 19950401
  10. LIPITOR [Concomitant]
     Indication: HYPERCHOLESTERAEMIA
     Dosage: UNK
     Dates: start: 20001110
  11. LEVOTHYROXINE [Concomitant]
     Indication: TSH DECREASE
     Dosage: UNK
     Dates: start: 19950501
  12. LEVOTHYROXINE [Concomitant]
     Indication: PRIMARY HYPOTHYROIDISM
  13. LIVIAL [Concomitant]
     Indication: OSTEOPOROSIS PROPHYLAXIS
     Dosage: UNK
     Dates: start: 20011001
  14. HYDROCORTISONE [Concomitant]
     Indication: ACTH DECREASED
     Dosage: UNK
     Dates: start: 20000609
  15. RENITEC [Concomitant]
     Indication: ESSENTIAL HYPERTENSION
     Dosage: UNK
     Dates: start: 20020315

REACTIONS (1)
  - Atrial fibrillation [Unknown]
